FAERS Safety Report 19194002 (Version 1)
Quarter: 2021Q2

REPORT INFORMATION
  Report Type: Spontaneous
  Country: US (occurrence: US)
  Receive Date: 20210428
  Receipt Date: 20210428
  Transmission Date: 20210717
  Serious: Yes (Other)
  Sender: FDA-Public Use
  Company Number: None

PATIENT
  Age: 63 Year

DRUGS (3)
  1. PHENYTOIN ER [Suspect]
     Active Substance: PHENYTOIN SODIUM
     Indication: SEIZURE
     Route: 048
  2. BRIVIACT [Concomitant]
     Active Substance: BRIVARACETAM
  3. VIMPAT [Concomitant]
     Active Substance: LACOSAMIDE

REACTIONS (2)
  - Product substitution issue [None]
  - Seizure [None]
